FAERS Safety Report 16806824 (Version 4)
Quarter: 2021Q3

REPORT INFORMATION
  Report Type: Spontaneous
  Country: JP (occurrence: JP)
  Receive Date: 20190913
  Receipt Date: 20210903
  Transmission Date: 20211014
  Serious: Yes (Hospitalization)
  Sender: FDA-Public Use
  Company Number: JP-EISAI MEDICAL RESEARCH-EC-2018-047743

PATIENT
  Age: 90 Year
  Sex: Male
  Weight: 45 kg

DRUGS (2)
  1. LENVATINIB [Suspect]
     Active Substance: LENVATINIB
     Indication: HEPATOCELLULAR CARCINOMA
     Route: 048
     Dates: start: 20180811, end: 20181106
  2. LENVATINIB [Suspect]
     Active Substance: LENVATINIB
     Route: 048
     Dates: start: 20181203

REACTIONS (13)
  - Ascites [Recovered/Resolved]
  - Liver disorder [Recovered/Resolved]
  - Fatigue [Not Recovered/Not Resolved]
  - Hypertension [Unknown]
  - Hypothyroidism [Unknown]
  - Thrombocytopenia [Recovered/Resolved]
  - Proteinuria [Recovered/Resolved]
  - Malaise [Recovered/Resolved]
  - Portal hypertension [Recovered/Resolved]
  - Palmar-plantar erythrodysaesthesia syndrome [Unknown]
  - Hypoalbuminaemia [Recovered/Resolved]
  - Cholecystitis [Unknown]
  - Decreased appetite [Recovered/Resolved]

NARRATIVE: CASE EVENT DATE: 201808
